FAERS Safety Report 16270926 (Version 13)
Quarter: 2020Q4

REPORT INFORMATION
  Report Type: Report from Study
  Country: JP (occurrence: JP)
  Receive Date: 20190503
  Receipt Date: 20201116
  Transmission Date: 20210113
  Serious: Yes (Death, Life-Threatening, Hospitalization, Other)
  Sender: FDA-Public Use
  Company Number: JP-GILEAD-2019-0404546

PATIENT
  Age: 56 Year
  Sex: Male
  Weight: 47 kg

DRUGS (25)
  1. SAMSCA [Concomitant]
     Active Substance: TOLVAPTAN
     Indication: HEPATIC CIRRHOSIS
     Dosage: 7.5 MG, QD
     Route: 048
     Dates: start: 20181225, end: 20200228
  2. CALONAL [Concomitant]
     Active Substance: ACETAMINOPHEN
     Dosage: 200 MG, 2 DOSAGE FORM , WHEN FEVER
  3. SODIUM PICOSULFATE JG [Concomitant]
     Dosage: 5 OR 6 DROPS PER TIME, ADJUST AS APPROPRIATE
  4. SOFOSBUVIR W/VELPATASVIR [Suspect]
     Active Substance: SOFOSBUVIR\VELPATASVIR
     Indication: HEPATITIS C
  5. CARTIN [LEVOCARNITINE] [Concomitant]
     Indication: HEPATIC CIRRHOSIS
     Dosage: 500 MG, TID
     Route: 048
     Dates: start: 20181225, end: 20200120
  6. RIFXIMA [Concomitant]
     Active Substance: RIFAXIMIN
     Indication: HEPATIC CIRRHOSIS
     Dosage: 200 MG, TID
     Route: 048
     Dates: start: 20190225, end: 20200228
  7. OXAROL [Concomitant]
     Active Substance: MAXACALCITOL
     Dosage: WITH ANTEBATE, 2 OR 3 TIMES PER DAY ON FACE
  8. FUROSEMIDE. [Concomitant]
     Active Substance: FUROSEMIDE
     Indication: HEPATIC CIRRHOSIS
     Dosage: 40 MG, QD
     Route: 048
     Dates: start: 20181225, end: 20200120
  9. PURSENNID EX-LAX [SENNOSIDE A+B CALCIUM] [Concomitant]
     Indication: HEPATIC CIRRHOSIS
     Dosage: 12 MG, QD
  10. OXAROL [Concomitant]
     Active Substance: MAXACALCITOL
     Dosage: 2 OR 3 TIMES PER DAY ON FACE
  11. ALBUMIN [Concomitant]
     Active Substance: ALBUMIN HUMAN
     Indication: HEPATIC CIRRHOSIS
     Dosage: UNK
     Dates: start: 20190315, end: 20200206
  12. SPIRONOLACTONE. [Concomitant]
     Active Substance: SPIRONOLACTONE
     Indication: HEPATIC CIRRHOSIS
     Dosage: 50 MG, BID
     Route: 048
     Dates: start: 20181225, end: 20200130
  13. MIYA-BM [Concomitant]
     Active Substance: CLOSTRIDIUM BUTYRICUM SPORES STRAIN M-55
     Indication: HEPATIC CIRRHOSIS
     Dosage: 1 DOSAGE FORM, TID
  14. POLAPREZINC [Concomitant]
     Active Substance: POLAPREZINC
  15. ANTEBATE [Concomitant]
     Active Substance: BETAMETHASONE DIPROPIONATE
     Dosage: WITH OXAROL 25UG, 2 OR 3 TIMES PER DAY ON THE BODY
  16. SOFOSBUVIR W/VELPATASVIR [Suspect]
     Active Substance: SOFOSBUVIR\VELPATASVIR
     Indication: HEPATIC CIRRHOSIS
     Dosage: 1 DOSAGE FORM, QD
     Route: 048
     Dates: start: 20190325, end: 20190426
  17. WARFARIN [Suspect]
     Active Substance: WARFARIN
     Indication: PRODUCT USED FOR UNKNOWN INDICATION
     Dosage: UNK
     Route: 065
     Dates: end: 201912
  18. NEXIUM [Concomitant]
     Active Substance: ESOMEPRAZOLE MAGNESIUM
     Indication: HEPATIC CIRRHOSIS
     Dosage: 20 MG, QD
     Route: 048
     Dates: start: 20181225, end: 20200120
  19. URSODEOXYCHOLIC ACID [Concomitant]
     Active Substance: URSODIOL
     Dosage: 200 MG, TID
  20. PROMAC [POLAPREZINC] [Concomitant]
     Active Substance: POLAPREZINC
     Indication: HEPATIC CIRRHOSIS
     Dosage: 75 MG, BID
  21. CYSTEINE HYDROCHLORIDE;GLYCINE;GLYCYRRHIZIC ACID [Concomitant]
     Indication: HEPATIC CIRRHOSIS
     Dosage: UNK
     Dates: start: 20190315, end: 20200229
  22. AMINOLEBAN EN [Concomitant]
     Active Substance: UNSPECIFIED INGREDIENT
     Indication: HEPATIC CIRRHOSIS
     Dosage: 50 G, TID
     Route: 048
     Dates: start: 20181225, end: 20191203
  23. LIXIANA OD [Concomitant]
     Active Substance: EDOXABAN TOSYLATE
     Dosage: 30 MG, QD
  24. KINDAVATE [Concomitant]
     Active Substance: CLOBETASONE BUTYRATE
     Dosage: 0.05% 2 OR 3 TIMES PER DAY ON THE FACE
  25. BROTIZOLAM [Concomitant]
     Active Substance: BROTIZOLAM
     Dosage: 0.25 MG, QD

REACTIONS (7)
  - Portal vein thrombosis [Recovered/Resolved]
  - Hepatic failure [Fatal]
  - Oesophageal varices haemorrhage [Recovered/Resolved]
  - Drug ineffective [Unknown]
  - Gastrointestinal haemorrhage [Recovered/Resolved]
  - Gastric varices haemorrhage [Recovered/Resolved]
  - Hepatitis C [Unknown]

NARRATIVE: CASE EVENT DATE: 20190426
